FAERS Safety Report 16774176 (Version 1)
Quarter: 2019Q3

REPORT INFORMATION
  Report Type: Spontaneous
  Country: FR (occurrence: FR)
  Receive Date: 20190905
  Receipt Date: 20190905
  Transmission Date: 20191005
  Serious: Yes (Hospitalization)
  Sender: FDA-Public Use
  Company Number: FR-SUN PHARMACEUTICAL INDUSTRIES LTD-2019RR-219349

PATIENT
  Age: 80 Year
  Sex: Male
  Weight: 92 kg

DRUGS (2)
  1. ATENOLOL. [Suspect]
     Active Substance: ATENOLOL
     Indication: HYPERTENSIVE HEART DISEASE
     Dosage: 50 MILLIGRAM, DAILY
     Route: 048
  2. MALACEF 60MG, POUDRE ET SOLVANT POUR SOLUTION INJECTABLE [Suspect]
     Active Substance: ARTESUNATE
     Indication: MALARIA
     Dosage: 220 MILLIGRAM, BID
     Route: 042
     Dates: start: 20190804, end: 20190805

REACTIONS (2)
  - Bradycardia [Recovered/Resolved]
  - Atrioventricular block [Recovered/Resolved]

NARRATIVE: CASE EVENT DATE: 20190805
